FAERS Safety Report 5322083-7 (Version None)
Quarter: 2007Q2

REPORT INFORMATION
  Report Type: 
  Country: None (occurrence: None)
  Receive Date: 20070222
  Receipt Date: 20060719
  Transmission Date: 20071010
  Serious: Yes (Hospitalization)
  Sender: FDA-Public Use
  Company Number: HQWYE162219JUL06

PATIENT
  Age: 60 Year
  Sex: Female

DRUGS (2)
  1. EFFEXOR [Suspect]
     Dosage: OVERDOSE AMOUNT UNKNOWN
  2. UNKNOWN (UNKNOWN, ) [Suspect]
     Dosage: OVERDOSE AMOUNT UNKNOWN

REACTIONS (2)
  - INTENTIONAL OVERDOSE [None]
  - SUICIDE ATTEMPT [None]
